FAERS Safety Report 5408392-1 (Version None)
Quarter: 2007Q3

REPORT INFORMATION
  Report Type: 
  Country: None (occurrence: None)
  Receive Date: 20070802
  Receipt Date: 20070719
  Transmission Date: 20080115
  Serious: Yes (Death)
  Sender: FDA-Public Use
  Company Number: 200707IM000291

PATIENT
  Age: 20 Year
  Sex: Male

DRUGS (1)
  1. ACTIMMUNE [Suspect]

REACTIONS (2)
  - LIVER ABSCESS [None]
  - SEPSIS [None]
